FAERS Safety Report 10577861 (Version 1)
Quarter: 2014Q4

REPORT INFORMATION
  Report Type: Spontaneous
  Country: US (occurrence: US)
  Receive Date: 20141111
  Receipt Date: 20141111
  Transmission Date: 20150529
  Serious: Yes (Other)
  Sender: FDA-Public Use
  Company Number: US-CIPLA LTD.-2014US01674

PATIENT
  Age: 47 Year
  Sex: Female

DRUGS (7)
  1. LORATADINE. [Suspect]
     Active Substance: LORATADINE
     Indication: SKIN TEST
     Dosage: 5 MG/ML, UNK
  2. CETIRIZINE [Suspect]
     Active Substance: CETIRIZINE HYDROCHLORIDE
     Indication: SKIN TEST
     Dosage: 1 MG/ML, UNK
  3. LEVOCETIRIZINE [Suspect]
     Active Substance: LEVOCETIRIZINE
     Indication: SKIN TEST
     Dosage: 2.5 MG/ML, UNK
  4. DOXEPIN [Suspect]
     Active Substance: DOXEPIN
     Indication: SKIN TEST
     Dosage: 10 MG/ML, UNK
  5. FEXOFENADINE [Suspect]
     Active Substance: FEXOFENADINE\FEXOFENADINE HYDROCHLORIDE
     Indication: SKIN TEST
     Dosage: 30 MG/ML, UNK
  6. DIPHENHYDRAMINE [Suspect]
     Active Substance: DIPHENHYDRAMINE
     Indication: SKIN TEST
     Dosage: 12.5 MG/ 5ML
  7. HYDROXYZINE [Suspect]
     Active Substance: HYDROXYZINE\HYDROXYZINE HYDROCHLORIDE
     Indication: SKIN TEST
     Dosage: 10 MG/ML, UNK

REACTIONS (6)
  - Dyspnoea [Recovering/Resolving]
  - Pruritus [Recovering/Resolving]
  - Cough [Recovering/Resolving]
  - Pruritus generalised [None]
  - Scratch [None]
  - Bronchospasm [None]
